FAERS Safety Report 16670282 (Version 2)
Quarter: 2020Q3

REPORT INFORMATION
  Report Type: Spontaneous
  Country: CA (occurrence: CA)
  Receive Date: 20190805
  Receipt Date: 20200721
  Transmission Date: 20201102
  Serious: Yes (Other)
  Sender: FDA-Public Use
  Company Number: CA-ALLERGAN-1931929US

PATIENT
  Sex: Female

DRUGS (4)
  1. CITALOPRAM HYDROBROMIDE ? BP [Suspect]
     Active Substance: CITALOPRAM HYDROBROMIDE
     Indication: DEPRESSION
     Dosage: 20 MG
     Route: 065
  2. QUETIAPINE. [Suspect]
     Active Substance: QUETIAPINE
     Indication: PRODUCT USED FOR UNKNOWN INDICATION
     Dosage: 75 MG, QHS
     Route: 065
  3. CITALOPRAM HYDROBROMIDE ? BP [Suspect]
     Active Substance: CITALOPRAM HYDROBROMIDE
     Dosage: 10 MG
     Route: 065
  4. QUETIAPINE. [Suspect]
     Active Substance: QUETIAPINE
     Dosage: 25 MG, QD
     Route: 065

REACTIONS (12)
  - Agitation [Recovering/Resolving]
  - Energy increased [Recovering/Resolving]
  - Investigation [Unknown]
  - Pressure of speech [Recovering/Resolving]
  - Disease progression [Recovering/Resolving]
  - Bipolar disorder [Recovering/Resolving]
  - Tachyphrenia [Recovering/Resolving]
  - Insomnia [Recovering/Resolving]
  - Hypomania [Recovering/Resolving]
  - Irritability [Recovering/Resolving]
  - Depression [Recovering/Resolving]
  - Weight increased [Unknown]
